FAERS Safety Report 12991773 (Version 1)
Quarter: 2016Q4

REPORT INFORMATION
  Report Type: Spontaneous
  Country: US (occurrence: US)
  Receive Date: 20161201
  Receipt Date: 20161201
  Transmission Date: 20170207
  Serious: Yes (Other)
  Sender: FDA-Public Use
  Company Number: US-MYLANLABS-2016M1052861

PATIENT

DRUGS (7)
  1. CLOZAPINE. [Suspect]
     Active Substance: CLOZAPINE
     Indication: SCHIZOPHRENIA
     Dosage: 25 MG, QD
  2. CLOZAPINE. [Suspect]
     Active Substance: CLOZAPINE
     Dosage: 150 MG, QD
  3. CLOZAPINE. [Suspect]
     Active Substance: CLOZAPINE
     Dosage: 25 MG, QID
  4. FLUOXETINE [Concomitant]
     Active Substance: FLUOXETINE HYDROCHLORIDE
     Indication: SCHIZOPHRENIA
     Dosage: UNK
  5. CLOZAPINE. [Suspect]
     Active Substance: CLOZAPINE
     Dosage: 25 MG, QD
  6. VALPROIC ACID. [Concomitant]
     Active Substance: VALPROIC ACID
     Indication: PRODUCT USED FOR UNKNOWN INDICATION
     Dosage: UNK
  7. CLOZAPINE. [Suspect]
     Active Substance: CLOZAPINE
     Dosage: 350 MG, QD

REACTIONS (3)
  - Polyserositis [Unknown]
  - Pericardial effusion [Recovered/Resolved]
  - Pleural effusion [Recovered/Resolved]
